FAERS Safety Report 4640659-7 (Version None)
Quarter: 2005Q2

REPORT INFORMATION
  Report Type: 
  Country: None (occurrence: None)
  Receive Date: 20050419
  Receipt Date: 20050407
  Transmission Date: 20051028
  Serious: Yes (Hospitalization)
  Sender: FDA-Public Use
  Company Number: CERZ-10860

PATIENT
  Age: 50 Year
  Sex: Female

DRUGS (3)
  1. CEREZYME [Suspect]
     Indication: GAUCHER'S DISEASE
     Dates: start: 19980615
  2. FOSINORM [Concomitant]
  3. ASPIRIN [Suspect]

REACTIONS (1)
  - SUPRAVENTRICULAR TACHYCARDIA [None]
